FAERS Safety Report 6497541-2 (Version None)
Quarter: 2009Q4

REPORT INFORMATION
  Report Type: 
  Country: None (occurrence: None)
  Receive Date: 20091211
  Receipt Date: 20091210
  Transmission Date: 20100525
  Serious: Yes (Hospitalization)
  Sender: FDA-Public Use
  Company Number: GB-1161301

PATIENT
  Age: 65 Year
  Sex: Female

DRUGS (4)
  1. IOPIDINE [Suspect]
     Indication: ANGLE CLOSURE GLAUCOMA
     Dosage: OPHTHALMIC
     Route: 047
  2. MAXIDEX FORTE DROPS [Suspect]
     Indication: ANGLE CLOSURE GLAUCOMA
     Dosage: OPHTHALMIC
     Route: 047
  3. PILOCARPINE HCL [Suspect]
     Indication: ANGLE CLOSURE GLAUCOMA
     Dosage: OPHTHALMIC
     Route: 047
  4. ACETAZOLAMIDE [Concomitant]

REACTIONS (3)
  - MIOSIS [None]
  - RETINAL HAEMORRHAGE [None]
  - RETINOPATHY [None]
